FAERS Safety Report 18941700 (Version 1)
Quarter: 2021Q1

REPORT INFORMATION
  Report Type: Spontaneous
  Country: US (occurrence: US)
  Receive Date: 20210225
  Receipt Date: 20210225
  Transmission Date: 20210420
  Serious: Yes (Other)
  Sender: FDA-Public Use
  Company Number: US-BRACCO-2020US01235

PATIENT
  Age: 32 Year
  Sex: Male

DRUGS (2)
  1. ISOVUE 370 [Suspect]
     Active Substance: IOPAMIDOL
     Indication: COMPUTERISED TOMOGRAM THORAX
     Dosage: UNK UNK, SINGLE
     Dates: start: 20200219, end: 20200219
  2. ZOFRAN [Concomitant]
     Active Substance: ONDANSETRON HYDROCHLORIDE

REACTIONS (7)
  - Paraesthesia [Recovered/Resolved]
  - Throat tightness [Recovered/Resolved]
  - Paraesthesia oral [Recovered/Resolved]
  - Dyspnoea [Recovered/Resolved]
  - Pruritus [Recovered/Resolved]
  - Flushing [Recovered/Resolved]
  - Throat irritation [Recovered/Resolved]

NARRATIVE: CASE EVENT DATE: 20200219
